FAERS Safety Report 5055398-0 (Version None)
Quarter: 2006Q2

REPORT INFORMATION
  Report Type: 
  Country: None (occurrence: None)
  Receive Date: 20060616
  Receipt Date: 20060224
  Transmission Date: 20061013
  Serious: No
  Sender: FDA-Public Use
  Company Number: 2006US000476

PATIENT
  Age: 45 Year
  Sex: Male

DRUGS (1)
  1. VESICARE [Suspect]
     Indication: URINARY INCONTINENCE
     Dosage: 5 MG, ORAL
     Route: 048

REACTIONS (5)
  - HYPERHIDROSIS [None]
  - OVERDOSE [None]
  - PENILE INFECTION [None]
  - PENILE SWELLING [None]
  - URTICARIA [None]
